FAERS Safety Report 24649599 (Version 1)
Quarter: 2024Q4

REPORT INFORMATION
  Report Type: Report from Study
  Country: US (occurrence: US)
  Receive Date: 20241121
  Receipt Date: 20241121
  Transmission Date: 20250114
  Serious: Yes (Other)
  Sender: ALEXION PHARMACEUTICALS
  Company Number: US-AstraZeneca-CH-00748444A

PATIENT
  Weight: 81.633 kg

DRUGS (30)
  1. ACALABRUTINIB [Suspect]
     Active Substance: ACALABRUTINIB
     Indication: Chronic lymphocytic leukaemia
     Dosage: 100 MILLIGRAM, BID
  2. ACALABRUTINIB [Suspect]
     Active Substance: ACALABRUTINIB
     Dosage: 100 MILLIGRAM, BID
  3. ACALABRUTINIB [Suspect]
     Active Substance: ACALABRUTINIB
     Dosage: 100 MILLIGRAM, BID
  4. ACALABRUTINIB [Suspect]
     Active Substance: ACALABRUTINIB
     Dosage: 100 MILLIGRAM, BID
  5. ASPIRIN [Concomitant]
     Active Substance: ASPIRIN
  6. ASPIRIN [Concomitant]
     Active Substance: ASPIRIN
     Route: 065
  7. ATENOLOL [Concomitant]
     Active Substance: ATENOLOL
  8. ATENOLOL [Concomitant]
     Active Substance: ATENOLOL
     Route: 065
  9. ATORVASTATIN [Concomitant]
     Active Substance: ATORVASTATIN
  10. ATORVASTATIN [Concomitant]
     Active Substance: ATORVASTATIN
     Route: 065
  11. AZITHROMYCIN [Concomitant]
     Active Substance: AZITHROMYCIN
  12. AZITHROMYCIN [Concomitant]
     Active Substance: AZITHROMYCIN
     Route: 065
  13. MINERALS\VITAMINS [Concomitant]
     Active Substance: MINERALS\VITAMINS
  14. MINERALS\VITAMINS [Concomitant]
     Active Substance: MINERALS\VITAMINS
     Route: 065
  15. DOXYCYCLINE [Concomitant]
     Active Substance: DOXYCYCLINE
  16. DOXYCYCLINE [Concomitant]
     Active Substance: DOXYCYCLINE
     Route: 065
  17. FAMOTIDINE [Concomitant]
     Active Substance: FAMOTIDINE
  18. FAMOTIDINE [Concomitant]
     Active Substance: FAMOTIDINE
     Route: 065
  19. GABAPENTIN [Concomitant]
     Active Substance: GABAPENTIN
  20. GABAPENTIN [Concomitant]
     Active Substance: GABAPENTIN
     Route: 065
  21. LACTOBACILLUS ACIDOPHILUS [Concomitant]
     Active Substance: LACTOBACILLUS ACIDOPHILUS
  22. LACTOBACILLUS ACIDOPHILUS [Concomitant]
     Active Substance: LACTOBACILLUS ACIDOPHILUS
     Route: 065
  23. LEVOFLOXACIN [Concomitant]
     Active Substance: LEVOFLOXACIN
  24. LEVOFLOXACIN [Concomitant]
     Active Substance: LEVOFLOXACIN
     Route: 065
  25. PRILOSEC [Concomitant]
     Active Substance: OMEPRAZOLE MAGNESIUM
  26. PRILOSEC [Concomitant]
     Active Substance: OMEPRAZOLE MAGNESIUM
     Route: 065
  27. TETRACYCLINE [Concomitant]
     Active Substance: TETRACYCLINE
  28. TETRACYCLINE [Concomitant]
     Active Substance: TETRACYCLINE
     Route: 065
  29. VITAMIN D3 [Concomitant]
     Active Substance: CHOLECALCIFEROL
  30. VITAMIN D3 [Concomitant]
     Active Substance: CHOLECALCIFEROL
     Route: 065

REACTIONS (2)
  - Neuropathy peripheral [Unknown]
  - Peripheral vascular disorder [Unknown]
